FAERS Safety Report 25600744 (Version 5)
Quarter: 2025Q4

REPORT INFORMATION
  Report Type: Spontaneous
  Country: US (occurrence: US)
  Receive Date: 20250724
  Receipt Date: 20251226
  Transmission Date: 20260118
  Serious: No
  Sender: SANOFI AVENTIS
  Company Number: US-SA-2025SA212547

PATIENT
  Age: 50 Year
  Sex: Female
  Weight: 68.18 kg

DRUGS (7)
  1. ALTUVIIIO [Suspect]
     Active Substance: EFANESOCTOCOG ALFA
     Indication: Factor VIII deficiency
     Dosage: 3700 IU, Q5D
     Route: 042
     Dates: start: 202304
  2. ALTUVIIIO [Suspect]
     Active Substance: EFANESOCTOCOG ALFA
     Dosage: 3700 IU, PRN
     Route: 042
     Dates: start: 202304
  3. ALTUVIIIO [Suspect]
     Active Substance: EFANESOCTOCOG ALFA
     Dosage: 2000 IU, Q3D
     Dates: start: 20250721
  4. ALTUVIIIO [Suspect]
     Active Substance: EFANESOCTOCOG ALFA
     Dosage: 2000 IU, PRN
     Dates: start: 20250721
  5. ALTUVIIIO [Suspect]
     Active Substance: EFANESOCTOCOG ALFA
     Dosage: 3800 U, Q5D
     Route: 042
     Dates: start: 202304
  6. ALTUVIIIO [Suspect]
     Active Substance: EFANESOCTOCOG ALFA
     Dosage: 3800 U, PRN
     Route: 042
     Dates: start: 202304
  7. XDEMVY [Concomitant]
     Active Substance: LOTILANER
     Dosage: UNK

REACTIONS (6)
  - Haemorrhage [Unknown]
  - Swelling [Unknown]
  - Contusion [Unknown]
  - Neck pain [Unknown]
  - Haemorrhage [Recovered/Resolved]
  - Off label use [Unknown]

NARRATIVE: CASE EVENT DATE: 20230401
